FAERS Safety Report 9869967 (Version 2)
Quarter: 2014Q3

REPORT INFORMATION
  Report Type: Spontaneous
  Country: JP (occurrence: None)
  Receive Date: 20140131
  Receipt Date: 20140715
  Transmission Date: 20150326
  Serious: Yes (Other)
  Sender: FDA-Public Use
  Company Number: 1401-0154

PATIENT
  Age: 80 Year
  Sex: Male

DRUGS (7)
  1. EYLEA [Suspect]
     Active Substance: AFLIBERCEPT
     Indication: AGE-RELATED MACULAR DEGENERATION
     Route: 031
  2. PLAVIX(CLOPIDOGREL BISULFATE) [Concomitant]
  3. HYALEIN (HYALURONATE SODIUM) [Concomitant]
  4. SODIUM (SODIUM) [Concomitant]
  5. VEGAMOX (MOXIFLOXACIN HYDROCHLORIDE) [Concomitant]
  6. EYLEA [Suspect]
     Active Substance: AFLIBERCEPT
     Indication: PRODUCT USED FOR UNKNOWN INDICATION
     Route: 031
  7. BAYASPIRIN (ACETYLSALICYLIC ACID) (ACETYLSALICYLIC ACID) [Concomitant]
     Active Substance: ASPIRIN
     Dates: start: 20131231

REACTIONS (2)
  - Vitreous haemorrhage [None]
  - Eye pain [None]

NARRATIVE: CASE EVENT DATE: 20131115
